FAERS Safety Report 11047322 (Version 5)
Quarter: 2016Q1

REPORT INFORMATION
  Report Type: Report from Study
  Country: GB (occurrence: GB)
  Receive Date: 20150420
  Receipt Date: 20160104
  Transmission Date: 20160525
  Serious: No
  Sender: FDA-Public Use
  Company Number: GB-JNJFOC-20150115363

PATIENT
  Age: 33 Year
  Sex: Male

DRUGS (1)
  1. STELARA [Suspect]
     Active Substance: USTEKINUMAB
     Indication: PSORIASIS
     Route: 058
     Dates: start: 20131129

REACTIONS (5)
  - Liver function test abnormal [Not Recovered/Not Resolved]
  - Nasopharyngitis [Unknown]
  - Hepatic steatosis [Not Recovered/Not Resolved]
  - Psoriasis [Recovered/Resolved]
  - Drug ineffective [Recovered/Resolved]

NARRATIVE: CASE EVENT DATE: 20150127
